FAERS Safety Report 6123228-1 (Version None)
Quarter: 2009Q1

REPORT INFORMATION
  Report Type: 
  Country: None (occurrence: None)
  Receive Date: 20090318
  Receipt Date: 20090316
  Transmission Date: 20090719
  Serious: Yes (Hospitalization, Other)
  Sender: FDA-Public Use
  Company Number: GR-BRISTOL-MYERS SQUIBB COMPANY-14523567

PATIENT
  Age: 63 Year
  Sex: Male

DRUGS (2)
  1. BARACLUDE [Suspect]
     Indication: HEPATITIS B
     Dosage: TAKEN FOR 1,5 YEAR
     Route: 048
  2. LOPRESSOR [Concomitant]
     Dosage: 1,5 YEAR AGO TO UPDATE

REACTIONS (1)
  - BILE DUCT CANCER [None]
